FAERS Safety Report 8555442-X (Version None)
Quarter: 2012Q3

REPORT INFORMATION
  Report Type: 
  Country: None (occurrence: None)
  Receive Date: 20120731
  Receipt Date: 20110825
  Transmission Date: 20120928
  Serious: Yes (Other)
  Sender: FDA-Public Use
  Company Number: US-ASTRAZENECA-2011SE12737

PATIENT
  Age: 27 Year
  Sex: Male

DRUGS (24)
  1. TELMISARTAN [Concomitant]
     Route: 048
     Dates: start: 20081022
  2. ZOCOR [Concomitant]
     Dates: start: 20090407
  3. SEROQUEL [Suspect]
     Route: 048
     Dates: start: 20081103
  4. METOCLOPRAMIDE [Concomitant]
     Route: 048
     Dates: start: 20070307
  5. MELOXICAM [Concomitant]
     Route: 048
     Dates: start: 20070417
  6. PERCOCET [Concomitant]
     Route: 048
     Dates: start: 20070430
  7. METHOCARBAMOL [Concomitant]
     Route: 048
     Dates: start: 20070430
  8. LORTAB [Concomitant]
     Dosage: 7.5/500
     Route: 048
     Dates: start: 20070724
  9. OXYCODONE HCL EXTENDED-RELEASE [Concomitant]
     Route: 048
     Dates: start: 20081016
  10. MICARDIS [Concomitant]
     Dosage: 40/12.5 MG
     Route: 048
     Dates: start: 20081210
  11. ACETAMINOPHEN [Concomitant]
     Dosage: 325-500 MG
     Route: 048
     Dates: start: 20070308
  12. LOPERAMIDE [Concomitant]
     Route: 048
     Dates: start: 20070307
  13. NAPROXEN [Concomitant]
     Route: 048
     Dates: start: 20070322
  14. NEURONTIN [Concomitant]
     Dates: start: 20090407
  15. ZOLOFT [Concomitant]
     Dates: start: 20090407
  16. LISINOPRIL [Concomitant]
     Route: 048
     Dates: start: 20081022
  17. ATENOLOL [Concomitant]
     Dates: start: 20090407
  18. PROMETHAZINE [Concomitant]
     Route: 048
     Dates: start: 20070814
  19. DOXYCYCLINE HCL [Concomitant]
     Route: 048
     Dates: start: 20080122
  20. SERTRALINE HYDROCHLORIDE [Concomitant]
     Route: 048
     Dates: start: 20081103
  21. SIMVASTATIN [Concomitant]
     Route: 048
     Dates: start: 20081210
  22. TRAMADOL HYDROCHLORIDE [Concomitant]
     Route: 048
     Dates: start: 20070711
  23. GABAPENTIN [Concomitant]
     Route: 048
     Dates: start: 20071120
  24. TRAZODONE HCL [Concomitant]
     Dates: start: 20090407

REACTIONS (4)
  - PANCREATITIS [None]
  - DIABETES MELLITUS INADEQUATE CONTROL [None]
  - TYPE 2 DIABETES MELLITUS [None]
  - DIABETIC COMA [None]
